FAERS Safety Report 7294541 (Version 2)
Quarter: 2014Q2

REPORT INFORMATION
  Report Type: Spontaneous
  Country: None (occurrence: None)
  Receive Date: 20091014
  Receipt Date: 20140415
  Transmission Date: 20141212
  Serious: Yes (Other)
  Sender: FDA-Public Use
  Company Number: AUR-APL-2009-00709

PATIENT
  Age: 54 Year
  Sex: Male

DRUGS (12)
  1. ZIDOVUDINE [Suspect]
     Indication: HIV INFECTION
  2. STAVUDINE [Suspect]
     Indication: HIV INFECTION
  3. LAMIVUDINE [Suspect]
     Indication: HIV INFECTION
  4. INDINAVIR [Suspect]
     Indication: HIV INFECTION
  5. ABACAVIR [Suspect]
     Indication: HIV INFECTION
  6. NEVIRAPINE [Suspect]
     Indication: HIV INFECTION
  7. ENFUVIRTIDE [Suspect]
     Indication: HIV INFECTION
  8. UNSPECIFIED INGREDIENT [Suspect]
     Indication: HIV INFECTION
  9. LOPINAVIR\RITONAVIR [Suspect]
  10. UNSPECIFIED INGREDIENT [Suspect]
     Indication: HIV INFECTION
  11. SAQUINAVIR [Suspect]
     Indication: HIV INFECTION
  12. DIDANOSINE [Suspect]
     Indication: HIV INFECTION

REACTIONS (8)
  - Mitochondrial toxicity [None]
  - Ophthalmoplegia [None]
  - Lipodystrophy acquired [None]
  - Eyelid ptosis [None]
  - Dysphagia [None]
  - Diplopia [None]
  - Drug effect decreased [None]
  - Blood lactic acid increased [None]
